FAERS Safety Report 15401516 (Version 6)
Quarter: 2019Q4

REPORT INFORMATION
  Report Type: Spontaneous
  Country: US (occurrence: US)
  Receive Date: 20180919
  Receipt Date: 20191227
  Transmission Date: 20200122
  Serious: No
  Sender: FDA-Public Use
  Company Number: US-PFIZER INC-2018374505

PATIENT
  Age: 59 Year
  Sex: Male
  Weight: 86 kg

DRUGS (18)
  1. VIAGRA [Suspect]
     Active Substance: SILDENAFIL CITRATE
     Indication: ERECTILE DYSFUNCTION
     Dosage: 2-3 TABLETS, (TOOK MORE AS HE MIGHT HAVE TO TAKE 2-3 TABLETS)
     Route: 048
  2. VIAGRA [Suspect]
     Active Substance: SILDENAFIL CITRATE
     Dosage: 10 DF, UNK
     Route: 048
  3. VITAMIN D3 [Concomitant]
     Active Substance: CHOLECALCIFEROL
     Dosage: UNK
  4. LISINOPRIL HCTZ [Concomitant]
     Active Substance: HYDROCHLOROTHIAZIDE\LISINOPRIL
     Dosage: UNK, 1X/DAY (20-12.5MG TABLET ONCE A DAY)
  5. POTASSIUM CHLORIDE. [Concomitant]
     Active Substance: POTASSIUM CHLORIDE
     Indication: HYPOKALAEMIA
     Dosage: 10 MEQ, 1X/DAY (10MEQ ER TIDS PILL ONCE A DAY)
  6. VITAMIN D [Concomitant]
     Active Substance: VITAMIN D NOS
     Indication: VITAMIN D DECREASED
     Dosage: UNK, 1X/DAY (ONE GEL PILL ONCE A DAY)
  7. LORATADINE. [Concomitant]
     Active Substance: LORATADINE
     Indication: SINUSITIS
     Dosage: 10 MG, 1X/DAY
  8. FLUTICASONE PROPIONATE. [Concomitant]
     Active Substance: FLUTICASONE PROPIONATE
     Indication: SINUSITIS
     Dosage: UNK UNK, 1X/DAY (50MCG SPRAY TAKE ONE IN EACH NOSTRIL ONCE A DAY)
     Route: 045
  9. LOSARTAN AND HYDROCHLOROTHIAZIDE [Concomitant]
     Active Substance: HYDROCHLOROTHIAZIDE\LOSARTAN POTASSIUM
     Dosage: UNK UNK, 1X/DAY ([HYDROCHLOROTHIAZIDE: 25 MG]/[LOSARTAN POTASSIUM: 100 MG])
  10. VIAGRA [Suspect]
     Active Substance: SILDENAFIL CITRATE
     Dosage: 4 DF, UNK
     Route: 048
  11. FISH OIL [Concomitant]
     Active Substance: FISH OIL
     Indication: BLOOD CHOLESTEROL ABNORMAL
     Dosage: 1 MG, 2X/DAY(1MG PILL ONCE IN THE MORNING AND EVENING)
  12. OMEGA 3 [FISH OIL] [Concomitant]
     Active Substance: FISH OIL
     Dosage: 3000 MG, 1X/DAY (SOP SOFT GELS MATROL)
  13. VIAGRA [Suspect]
     Active Substance: SILDENAFIL CITRATE
     Dosage: 100 MG, UNK( TAKE ONE, TWO, OR THREE AT A TIME)
  14. VIAGRA [Suspect]
     Active Substance: SILDENAFIL CITRATE
     Dosage: UNK
  15. FLUTICASONE PROPIONATE. [Concomitant]
     Active Substance: FLUTICASONE PROPIONATE
     Dosage: 50 MG, UNK (50MG ONE SPRAY EACH NOSTRIL)
  16. POTASSIUM CHLORIDE. [Concomitant]
     Active Substance: POTASSIUM CHLORIDE
     Dosage: 10 MG, 1X/DAY
  17. OMEPRAZOLE. [Concomitant]
     Active Substance: OMEPRAZOLE
     Indication: BLOOD PRESSURE ABNORMAL
     Dosage: 20 MG, 1X/DAY
  18. RANITIDINE. [Concomitant]
     Active Substance: RANITIDINE
     Dosage: 100 MG, 1X/DAY(100MG TAKE ONE PILL ONCE A DAY)

REACTIONS (3)
  - Drug ineffective [Not Recovered/Not Resolved]
  - Intentional overdose [Unknown]
  - Prescribed overdose [Unknown]
